FAERS Safety Report 18445488 (Version 3)
Quarter: 2021Q1

REPORT INFORMATION
  Report Type: Report from Study
  Country: US (occurrence: US)
  Receive Date: 20201030
  Receipt Date: 20210108
  Transmission Date: 20210419
  Serious: No
  Sender: FDA-Public Use
  Company Number: US-BIOVITRUM-2019US3536

PATIENT
  Age: 66 Year
  Sex: Male

DRUGS (9)
  1. OMEPRAZOLE. [Concomitant]
     Active Substance: OMEPRAZOLE
     Indication: PRODUCT USED FOR UNKNOWN INDICATION
  2. METHYLPREDNISOLONE. [Concomitant]
     Active Substance: METHYLPREDNISOLONE
     Indication: PRODUCT USED FOR UNKNOWN INDICATION
  3. KINERET [Suspect]
     Active Substance: ANAKINRA
     Route: 058
  4. COLCHICINE. [Concomitant]
     Active Substance: COLCHICINE
     Indication: PRODUCT USED FOR UNKNOWN INDICATION
  5. ELIQUIS [Concomitant]
     Active Substance: APIXABAN
     Indication: PRODUCT USED FOR UNKNOWN INDICATION
  6. SERTRALINE [Concomitant]
     Active Substance: SERTRALINE HYDROCHLORIDE
     Indication: PRODUCT USED FOR UNKNOWN INDICATION
  7. KINERET [Suspect]
     Active Substance: ANAKINRA
     Indication: GOUT
     Route: 058
     Dates: start: 20190910
  8. HYDROXYCHLOROQUINE [Concomitant]
     Active Substance: HYDROXYCHLOROQUINE
     Indication: PRODUCT USED FOR UNKNOWN INDICATION
  9. PREDNISONE. [Concomitant]
     Active Substance: PREDNISONE
     Indication: PRODUCT USED FOR UNKNOWN INDICATION

REACTIONS (8)
  - Product dose omission issue [Recovered/Resolved]
  - Infection [Unknown]
  - Pain [Not Recovered/Not Resolved]
  - Pain in extremity [Unknown]
  - Off label use [Unknown]
  - Loss of personal independence in daily activities [Unknown]
  - Joint injury [Unknown]
  - Fatigue [Unknown]

NARRATIVE: CASE EVENT DATE: 20190910
